FAERS Safety Report 6765956-0 (Version None)
Quarter: 2010Q2

REPORT INFORMATION
  Report Type: 
  Country: None (occurrence: None)
  Receive Date: 20100609
  Receipt Date: 20100326
  Transmission Date: 20101027
  Serious: Yes (Hospitalization)
  Sender: FDA-Public Use
  Company Number: DSA_43233_2010

PATIENT
  Age: 79 Year
  Sex: Female

DRUGS (2)
  1. DILTIAZEM HCL [Suspect]
     Indication: HYPERTENSION
     Dosage: 200 MG QD ORAL
     Route: 048
     Dates: start: 20080101, end: 20100315
  2. ARICEPT [Suspect]
     Indication: DEMENTIA ALZHEIMER'S TYPE
     Dates: start: 20090101, end: 20100315

REACTIONS (6)
  - BRADYCARDIA [None]
  - DRUG INTERACTION [None]
  - FEELING DRUNK [None]
  - MALAISE [None]
  - PRESYNCOPE [None]
  - SINOATRIAL BLOCK [None]
